FAERS Safety Report 8560963 (Version 5)
Quarter: 2013Q1

REPORT INFORMATION
  Report Type: Report from Study
  Country: FR (occurrence: FR)
  Receive Date: 20120514
  Receipt Date: 20130228
  Transmission Date: 20140127
  Serious: Yes (Hospitalization)
  Sender: FDA-Public Use
  Company Number: FR-ROCHE-1061968

PATIENT
  Age: 59 Year
  Sex: Female
  Weight: 41 kg

DRUGS (13)
  1. PEG-INTERFERON ALFA 2A [Suspect]
     Indication: CHRONIC HEPATITIS C
     Route: 058
     Dates: start: 20120123
  2. RIBAVIRIN [Suspect]
     Indication: CHRONIC HEPATITIS C
     Route: 048
     Dates: start: 20120123
  3. TMC435 [Suspect]
     Indication: CHRONIC HEPATITIS C
     Dosage: LAST DOSE PRIOR TO SAE ON 15/APR/2012
     Route: 048
     Dates: start: 20120123
  4. OPTRUMA [Concomitant]
     Indication: OSTEOPOROSIS
     Route: 048
  5. INEXIUM [Concomitant]
     Indication: GASTROOESOPHAGEAL REFLUX DISEASE
     Route: 048
  6. AMLOR [Concomitant]
     Indication: ANGINA PECTORIS
     Route: 048
  7. UVEDOSE [Concomitant]
     Indication: OSTEOPOROSIS
     Dosage: AMPOULE
     Route: 048
  8. NISIS [Concomitant]
     Indication: HYPERTENSION
     Route: 048
  9. NATISPRAY [Concomitant]
     Indication: ANGINA PECTORIS
     Route: 065
  10. KARDEGIC [Concomitant]
     Indication: ANGINA PECTORIS
     Route: 048
  11. TARDYFERON [Concomitant]
     Indication: ANAEMIA
     Route: 048
  12. BETAMETHASONE [Concomitant]
     Route: 061
     Dates: start: 20120206
  13. NEORECORMON [Concomitant]
     Route: 058
     Dates: start: 20120319

REACTIONS (2)
  - Malnutrition [Recovered/Resolved]
  - General physical health deterioration [Recovered/Resolved]
